FAERS Safety Report 16965410 (Version 1)
Quarter: 2019Q4

REPORT INFORMATION
  Report Type: Report from Study
  Country: JP (occurrence: JP)
  Receive Date: 20191028
  Receipt Date: 20191028
  Transmission Date: 20200122
  Serious: Yes (Other)
  Sender: FDA-Public Use
  Company Number: JP-INCYTE CORPORATION-2017IN005510

PATIENT

DRUGS (5)
  1. JAKAVI [Suspect]
     Active Substance: RUXOLITINIB
     Dosage: 10 MG, BID
     Route: 048
     Dates: start: 20160902
  2. HYDREA [Concomitant]
     Active Substance: HYDROXYUREA
     Indication: POLYCYTHAEMIA VERA
     Dosage: 500 MG, QD
     Route: 048
     Dates: end: 20160907
  3. FEBURIC [Concomitant]
     Active Substance: FEBUXOSTAT
     Indication: POLYCYTHAEMIA VERA
     Dosage: 10 MG, QD
     Route: 048
  4. REBAMIPIDE [Concomitant]
     Active Substance: REBAMIPIDE
     Indication: CHRONIC GASTRITIS
     Dosage: 300 MG, QD
     Route: 048
     Dates: start: 20161221, end: 20161228
  5. JAKAVI [Suspect]
     Active Substance: RUXOLITINIB
     Indication: POLYCYTHAEMIA VERA
     Dosage: 5 MG, BID
     Route: 048
     Dates: start: 20160824, end: 20160901

REACTIONS (8)
  - Aspartate aminotransferase increased [Recovered/Resolved]
  - Lung neoplasm malignant [Unknown]
  - Upper respiratory tract inflammation [Recovering/Resolving]
  - Cough [Recovering/Resolving]
  - Second primary malignancy [Unknown]
  - Pyrexia [Recovered/Resolved]
  - Alanine aminotransferase increased [Recovered/Resolved]
  - Liver disorder [Recovered/Resolved]

NARRATIVE: CASE EVENT DATE: 20160916
